FAERS Safety Report 5429515-4 (Version None)
Quarter: 2007Q3

REPORT INFORMATION
  Report Type: 
  Country: None (occurrence: None)
  Receive Date: 20070829
  Receipt Date: 20070822
  Transmission Date: 20080115
  Serious: Yes (Other)
  Sender: FDA-Public Use
  Company Number: DE-JNJFOC-20070803286

PATIENT
  Sex: Male
  Weight: 95 kg

DRUGS (5)
  1. RISPERDAL [Suspect]
     Indication: DRUG ABUSER
     Route: 048
  2. DIPIPERON [Suspect]
     Indication: DRUG ABUSER
  3. METOPROLOL SUCCINATE [Suspect]
     Indication: DRUG ABUSER
     Route: 048
  4. STANGYL [Suspect]
     Indication: DRUG ABUSER
     Route: 048
  5. DOXEPIN HCL [Suspect]
     Indication: DRUG ABUSER
     Route: 048

REACTIONS (7)
  - BLOOD CREATINE PHOSPHOKINASE INCREASED [None]
  - COORDINATION ABNORMAL [None]
  - DEPRESSED LEVEL OF CONSCIOUSNESS [None]
  - DRUG ABUSER [None]
  - HALLUCINATION [None]
  - LIVER FUNCTION TEST ABNORMAL [None]
  - TACHYCARDIA [None]
